FAERS Safety Report 11369983 (Version 1)
Quarter: 2015Q3

REPORT INFORMATION
  Report Type: Spontaneous
  Country: US (occurrence: US)
  Receive Date: 20150812
  Receipt Date: 20150812
  Transmission Date: 20151125
  Serious: No
  Sender: FDA-Public Use
  Company Number: US-JNJFOC-20150718747

PATIENT
  Age: 66 Year
  Sex: Female
  Weight: 108.86 kg

DRUGS (1)
  1. INVOKAMET [Suspect]
     Active Substance: CANAGLIFLOZIN\METFORMIN HYDROCHLORIDE
     Indication: DIABETES MELLITUS
     Dosage: DOSE: 50/1000 MG
     Route: 048
     Dates: start: 20150723

REACTIONS (4)
  - Abdominal discomfort [Not Recovered/Not Resolved]
  - Faeces discoloured [Unknown]
  - Pollakiuria [Not Recovered/Not Resolved]
  - Incorrect dose administered [Not Recovered/Not Resolved]

NARRATIVE: CASE EVENT DATE: 20150723
